FAERS Safety Report 4913597-X (Version None)
Quarter: 2006Q1

REPORT INFORMATION
  Report Type: 
  Country: None (occurrence: None)
  Receive Date: 20060214
  Receipt Date: 20060214
  Transmission Date: 20060701
  Serious: Yes (Other)
  Sender: FDA-Public Use
  Company Number: None

PATIENT
  Sex: Female

DRUGS (3)
  1. RIBAVIRIN [Suspect]
     Indication: HEPATITIS C
     Dates: start: 20020201, end: 20030301
  2. PEG-INTERFERON ALFA-2B [Suspect]
     Indication: HEPATITIS C
     Dates: start: 20020201, end: 20030301
  3. PEG-INTERFERON ALFA-2B [Suspect]
     Indication: HEPATITIS C
     Dates: start: 20020201, end: 20030301

REACTIONS (4)
  - ARTHRALGIA [None]
  - ASTHENIA [None]
  - DRUG INEFFECTIVE [None]
  - MYALGIA [None]
